FAERS Safety Report 10467066 (Version 2)
Quarter: 2014Q3

REPORT INFORMATION
  Report Type: Report from Study
  Country: US (occurrence: US)
  Receive Date: 20140922
  Receipt Date: 20140922
  Transmission Date: 20150326
  Serious: Yes (Other)
  Sender: FDA-Public Use
  Company Number: US-SA-LEUK-1000279

PATIENT
  Age: 65 Year
  Sex: Female
  Weight: 83.1 kg

DRUGS (19)
  1. IPILIMUMAB [Suspect]
     Active Substance: IPILIMUMAB
     Indication: MALIGNANT MELANOMA
     Dosage: 10 MG/KG, OVER 90 MINS ON DAY 1 IN CYCLE 1-4
     Route: 042
     Dates: start: 20120312, end: 20120312
  2. IPILIMUMAB [Suspect]
     Active Substance: IPILIMUMAB
     Indication: MALIGNANT MELANOMA
     Dosage: 10 MG/KG, OVER 90 MINS ON DAY 1 IN CYCLE 1-4
     Route: 042
     Dates: start: 20120611, end: 20120611
  3. ALL OTHER THERAPEUTIC PRODUCTS [Concomitant]
     Active Substance: UNSPECIFIED INGREDIENT
  4. FENUGREEK [Concomitant]
  5. POTASSIUM [Concomitant]
     Active Substance: POTASSIUM
  6. SARGRAMOSTIM [Suspect]
     Active Substance: SARGRAMOSTIM
     Indication: MALIGNANT MELANOMA
     Dosage: 250 MCG, QD ON DAYS 1-14 IN A 21 DAY CYCLE
     Route: 065
     Dates: start: 20110711
  7. TERAZOSIN [Concomitant]
     Active Substance: TERAZOSIN\TERAZOSIN HYDROCHLORIDE
     Dosage: UNK
     Route: 048
  8. SODIUM FLUORIDE. [Concomitant]
     Active Substance: SODIUM FLUORIDE
  9. HYDROCHLOROTHIAZIDE. [Concomitant]
     Active Substance: HYDROCHLOROTHIAZIDE
  10. METOPROLOL [Concomitant]
     Active Substance: METOPROLOL
  11. VITAMIN D [Concomitant]
     Active Substance: CHOLECALCIFEROL
  12. IPILIMUMAB [Suspect]
     Active Substance: IPILIMUMAB
     Indication: MALIGNANT MELANOMA
     Dosage: 10 MG/KG, OVER 90 MINS ON DAY 1 IN CYCLE 1-4
     Route: 042
     Dates: start: 20110711
  13. CALCIUM [Concomitant]
     Active Substance: CALCIUM
     Dosage: UNK
     Route: 048
  14. VITAMIN A [Concomitant]
     Active Substance: VITAMIN A
  15. LISINOPRIL. [Concomitant]
     Active Substance: LISINOPRIL
     Indication: BLOOD PRESSURE
  16. SARGRAMOSTIM [Suspect]
     Active Substance: SARGRAMOSTIM
     Indication: MALIGNANT MELANOMA
     Route: 058
     Dates: start: 20120611
  17. AMLODIPINE [Concomitant]
     Active Substance: AMLODIPINE BESYLATE
     Route: 048
  18. MAGNESIUM [Concomitant]
     Active Substance: MAGNESIUM
  19. IPILIMUMAB [Suspect]
     Active Substance: IPILIMUMAB
     Indication: MALIGNANT MELANOMA
     Dosage: 10 MG/KG, OVER 90 MINS ON DAY 1 IN CYCLE 1-4
     Route: 042
     Dates: start: 20120905, end: 20120905

REACTIONS (2)
  - Lipase increased [Recovered/Resolved]
  - VIIth nerve paralysis [Recovering/Resolving]

NARRATIVE: CASE EVENT DATE: 20120430
